FAERS Safety Report 11358950 (Version 1)
Quarter: 2015Q3

REPORT INFORMATION
  Report Type: Report from Study
  Country: US (occurrence: US)
  Receive Date: 20150807
  Receipt Date: 20150807
  Transmission Date: 20151125
  Serious: Yes (Hospitalization, Other)
  Sender: FDA-Public Use
  Company Number: US-BRISTOL-MYERS SQUIBB COMPANY-BMS-2015-050271

PATIENT
  Age: 82 Year
  Sex: Male
  Weight: 90 kg

DRUGS (1)
  1. IPILIMUMAB [Suspect]
     Active Substance: IPILIMUMAB
     Indication: MYELODYSPLASTIC SYNDROME
     Dosage: 3 MG/KG, QCYCLE
     Route: 065
     Dates: start: 20150511, end: 20150713

REACTIONS (2)
  - Pyrexia [Recovered/Resolved with Sequelae]
  - Acute myeloid leukaemia [Unknown]

NARRATIVE: CASE EVENT DATE: 20150715
